FAERS Safety Report 26185890 (Version 1)
Quarter: 2025Q4

REPORT INFORMATION
  Report Type: Spontaneous
  Country: US (occurrence: None)
  Receive Date: 20251220
  Receipt Date: 20251220
  Transmission Date: 20260117
  Serious: Yes (Other)
  Sender: FDA-CTU
  Company Number: None

PATIENT
  Age: 48 Year
  Sex: Female
  Weight: 56.25 kg

DRUGS (7)
  1. DOTTI [Suspect]
     Active Substance: ESTRADIOL
     Indication: Hormone replacement therapy
     Dosage: 1 PATCH(ES) TWICE A WEEK TOPICAL
     Route: 061
     Dates: start: 20251205, end: 20251205
  2. SPIRONOLACTONE [Concomitant]
     Active Substance: SPIRONOLACTONE
  3. potassium chloride 25 meq [Concomitant]
  4. VITAMIN B COMPLEX [Concomitant]
     Active Substance: CYANOCOBALAMIN\DEXPANTHENOL\NIACINAMIDE\PYRIDOXINE HYDROCHLORIDE\RIBOFLAVIN 5^-PHOSPHATE SODIUM\THIA
  5. NM-6603 [Concomitant]
     Active Substance: NM-6603
  6. d3 1000 IU [Concomitant]
  7. IRON [Concomitant]
     Active Substance: IRON

REACTIONS (5)
  - Blood pressure increased [None]
  - Feeling cold [None]
  - Heart rate increased [None]
  - Anxiety [None]
  - Panic attack [None]

NARRATIVE: CASE EVENT DATE: 20251205
